FAERS Safety Report 8268052-9 (Version None)
Quarter: 2012Q2

REPORT INFORMATION
  Report Type: 
  Country: None (occurrence: None)
  Receive Date: 20120404
  Receipt Date: 20120326
  Transmission Date: 20120825
  Serious: Yes (Other)
  Sender: FDA-Public Use
  Company Number: DSA_55791_2012

PATIENT
  Sex: Male

DRUGS (2)
  1. RAMIPRIL [Concomitant]
  2. XENAZINE [Suspect]
     Indication: BLEPHAROSPASM
     Dosage: (100 MG QD ORAL)
     Route: 048
     Dates: start: 20120215, end: 20120314

REACTIONS (3)
  - HYPERHIDROSIS [None]
  - MUSCLE RIGIDITY [None]
  - TREMOR [None]
